FAERS Safety Report 8951273 (Version 1)
Quarter: 2012Q4

REPORT INFORMATION
  Report Type: 
  Country: NL (occurrence: SA)
  Receive Date: 20121207
  Receipt Date: 20121207
  Transmission Date: 20130627
  Serious: Yes (Death)
  Sender: FDA-Public Use
  Company Number: SA-ASTELLAS-2012EU010568

PATIENT
  Age: 60 Year
  Sex: Male

DRUGS (5)
  1. MICAFUNGIN [Suspect]
     Indication: PNEUMONIA VIRAL
     Dosage: UNK
     Route: 065
     Dates: start: 20120614
  2. OSELTAMIVIR [Suspect]
     Indication: H1N1 INFLUENZA
     Dosage: UNK
     Route: 065
     Dates: start: 20120614
  3. PIPERACILLIN + TAZOBACTAM [Suspect]
     Dosage: UNK
     Route: 065
     Dates: start: 20120614
  4. LEVOFLOXACIN [Suspect]
     Dosage: UNK
     Route: 065
     Dates: start: 20120614
  5. MEROPENEM [Concomitant]
     Dosage: UNK
     Route: 065
     Dates: start: 20120617

REACTIONS (4)
  - Drug ineffective for unapproved indication [Unknown]
  - Acute respiratory distress syndrome [Fatal]
  - Multi-organ disorder [Fatal]
  - Renal failure [Fatal]
